FAERS Safety Report 4765141-8 (Version None)
Quarter: 2005Q3

REPORT INFORMATION
  Report Type: 
  Country: None (occurrence: None)
  Receive Date: 20050909
  Receipt Date: 20050825
  Transmission Date: 20060218
  Serious: Yes (Life-Threatening)
  Sender: FDA-Public Use
  Company Number: ITWYE930825AUG05

PATIENT
  Age: 49 Year
  Sex: Female

DRUGS (3)
  1. ENBREL [Suspect]
     Indication: MIXED CONNECTIVE TISSUE DISEASE
     Route: 058
     Dates: start: 20050515, end: 20050815
  2. ARAVA [Suspect]
     Indication: MIXED CONNECTIVE TISSUE DISEASE
     Dosage: 10 MG ON ALTERATE DAYS
     Route: 048
     Dates: start: 20020202, end: 20050815
  3. CELECOXIB [Suspect]
     Indication: MIXED CONNECTIVE TISSUE DISEASE
     Route: 048
     Dates: start: 20040101, end: 20050825

REACTIONS (2)
  - SYNCOPE [None]
  - TACHYCARDIA [None]
